FAERS Safety Report 6310556-X (Version None)
Quarter: 2009Q3

REPORT INFORMATION
  Report Type: 
  Country: None (occurrence: None)
  Receive Date: 20090811
  Receipt Date: 20090604
  Transmission Date: 20100115
  Serious: No
  Sender: FDA-Public Use
  Company Number: 1000006663

PATIENT
  Age: 59 Year
  Sex: Female

DRUGS (6)
  1. SAVELLA [Suspect]
     Indication: FIBROMYALGIA
     Dosage: 12.5 MG (12.5 MG, 1 IN 1 D),ORAL : 25 MG (12.5 MG, 2 IN 1 D),ORAL : 50 MG (25 MG, 2 IN 1 D),ORAL
     Route: 048
     Dates: start: 20090520, end: 20090520
  2. SAVELLA [Suspect]
     Indication: FIBROMYALGIA
     Dosage: 12.5 MG (12.5 MG, 1 IN 1 D),ORAL : 25 MG (12.5 MG, 2 IN 1 D),ORAL : 50 MG (25 MG, 2 IN 1 D),ORAL
     Route: 048
     Dates: start: 20090521, end: 20090522
  3. SAVELLA [Suspect]
     Indication: FIBROMYALGIA
     Dosage: 12.5 MG (12.5 MG, 1 IN 1 D),ORAL : 25 MG (12.5 MG, 2 IN 1 D),ORAL : 50 MG (25 MG, 2 IN 1 D),ORAL
     Route: 048
     Dates: start: 20090523, end: 20090526
  4. SAVELLA [Suspect]
     Indication: FIBROMYALGIA
     Dosage: 100 MG (50 MG, 2 IN 1 D),ORAL : 50 MG (25 MG, 2 IN 1 D),ORAL
     Route: 048
     Dates: start: 20090527, end: 20090602
  5. SAVELLA [Suspect]
     Indication: FIBROMYALGIA
     Dosage: 100 MG (50 MG, 2 IN 1 D),ORAL : 50 MG (25 MG, 2 IN 1 D),ORAL
     Route: 048
     Dates: start: 20090603
  6. SYNTHROID [Concomitant]

REACTIONS (5)
  - ABDOMINAL PAIN UPPER [None]
  - DEPRESSED MOOD [None]
  - INSOMNIA [None]
  - MUSCULAR WEAKNESS [None]
  - PAIN [None]
